FAERS Safety Report 6516723-4 (Version None)
Quarter: 2009Q4

REPORT INFORMATION
  Report Type: 
  Country: None (occurrence: None)
  Receive Date: 20091223
  Receipt Date: 20091209
  Transmission Date: 20100525
  Serious: Yes (Death, Hospitalization)
  Sender: FDA-Public Use
  Company Number: US-PFIZER INC-2009300983

PATIENT
  Sex: Female
  Weight: 47.9 kg

DRUGS (4)
  1. SUTENT [Suspect]
     Indication: MALIGNANT MELANOMA
     Dosage: 37.5 MG, 1X/DAY
     Route: 048
     Dates: start: 20090724, end: 20091112
  2. DULCOLAX [Concomitant]
  3. MIRALAX [Concomitant]
     Dosage: UNK
  4. AMBIEN [Concomitant]
     Dosage: UNK

REACTIONS (6)
  - ANAEMIA [None]
  - DISEASE PROGRESSION [None]
  - INTESTINAL OBSTRUCTION [None]
  - MALIGNANT MELANOMA [None]
  - NEUTROPENIA [None]
  - OEDEMA [None]
